FAERS Safety Report 6422830-7 (Version None)
Quarter: 2009Q4

REPORT INFORMATION
  Report Type: 
  Country: None (occurrence: None)
  Receive Date: 20091102
  Receipt Date: 20091021
  Transmission Date: 20100525
  Serious: Yes (Hospitalization)
  Sender: FDA-Public Use
  Company Number: JP-AMGEN-US184850

PATIENT
  Sex: Female

DRUGS (7)
  1. ENBREL [Suspect]
     Indication: RHEUMATOID ARTHRITIS
     Route: 058
     Dates: start: 20060510, end: 20060606
  2. RHEUMATREX [Suspect]
     Indication: RHEUMATOID ARTHRITIS
     Dosage: UNKNOWN
     Route: 048
     Dates: end: 20060606
  3. LANSOPRAZOLE [Concomitant]
     Route: 048
  4. OZEX [Concomitant]
     Route: 048
     Dates: end: 20060622
  5. LOXONIN [Concomitant]
     Indication: RHEUMATOID ARTHRITIS
     Route: 048
  6. SOLON [Concomitant]
  7. FOLIAMIN [Concomitant]
     Dosage: UNKNOWN
     Route: 048
     Dates: end: 20060606

REACTIONS (2)
  - ENCEPHALOPATHY [None]
  - PNEUMOCYSTIS JIROVECI PNEUMONIA [None]
